FAERS Safety Report 8985163 (Version 2)
Quarter: 2013Q1

REPORT INFORMATION
  Report Type: Spontaneous
  Country: US (occurrence: US)
  Receive Date: 20121226
  Receipt Date: 20130129
  Transmission Date: 20140127
  Serious: Yes (Other)
  Sender: FDA-Public Use
  Company Number: US-BAYER-2012-134041

PATIENT
  Age: 32 Year
  Sex: Female
  Weight: 58.96 kg

DRUGS (5)
  1. MIRENA [Suspect]
     Indication: CONTRACEPTION
     Dosage: 20 MCG/24HR, CONT
     Route: 015
     Dates: start: 20120612, end: 20121206
  2. MIRENA [Suspect]
     Indication: MENORRHAGIA
  3. B-COMPLEX [Concomitant]
  4. BIOTIN [Concomitant]
  5. MVI [Concomitant]

REACTIONS (8)
  - Uterine haemorrhage [Recovered/Resolved]
  - Pain [Recovered/Resolved]
  - Abdominal pain lower [Recovered/Resolved]
  - Vaginal discharge [None]
  - Vaginal odour [None]
  - Pelvic pain [None]
  - Vaginal infection [None]
  - Device difficult to use [None]
